FAERS Safety Report 7490703-7 (Version None)
Quarter: 2011Q2

REPORT INFORMATION
  Report Type: 
  Country: None (occurrence: None)
  Receive Date: 20110517
  Receipt Date: 20110517
  Transmission Date: 20111010
  Serious: Yes (Death)
  Sender: FDA-Public Use
  Company Number: None

PATIENT
  Age: 66 Year
  Sex: Female

DRUGS (3)
  1. REVLIMID [Suspect]
     Indication: MULTIPLE MYELOMA
     Dosage: 5MG DAILY ORAL
     Route: 048
     Dates: start: 20060101, end: 20100301
  2. REVLIMID [Suspect]
     Indication: AMYLOIDOSIS
     Dosage: 5MG DAILY ORAL
     Route: 048
     Dates: start: 20060101, end: 20100301
  3. PROCRIT [Concomitant]

REACTIONS (9)
  - SOMNOLENCE [None]
  - RENAL FAILURE [None]
  - UNRESPONSIVE TO STIMULI [None]
  - CARDIAC FAILURE CONGESTIVE [None]
  - TACHYCARDIA [None]
  - HYPOTENSION [None]
  - PRODUCTIVE COUGH [None]
  - ACIDOSIS [None]
  - HYPERCAPNIA [None]
